FAERS Safety Report 6994661-0 (Version None)
Quarter: 2010Q3

REPORT INFORMATION
  Report Type: 
  Country: None (occurrence: None)
  Receive Date: 20100915
  Receipt Date: 20100915
  Transmission Date: 20110219
  Serious: No
  Sender: FDA-Public Use
  Company Number: None

PATIENT
  Age: 59 Year
  Sex: Male
  Weight: 88.2 kg

DRUGS (2)
  1. NITROGLYCERIN [Suspect]
     Indication: OESOPHAGEAL FOOD IMPACTION
     Dosage: 0.4 MG ONCE SUBLINGUAL
     Route: 060
     Dates: start: 20100716, end: 20100716
  2. GLUCAGON [Suspect]
     Indication: OESOPHAGEAL FOOD IMPACTION
     Dosage: 1 MG ONCE IV
     Route: 042
     Dates: start: 20100716, end: 20100716

REACTIONS (3)
  - BRADYCARDIA [None]
  - HYPOTENSION [None]
  - SYNCOPE [None]
